FAERS Safety Report 6247805-2 (Version None)
Quarter: 2009Q2

REPORT INFORMATION
  Report Type: 
  Country: None (occurrence: None)
  Receive Date: 20090626
  Receipt Date: 20090615
  Transmission Date: 20091009
  Serious: Yes (Hospitalization, Other)
  Sender: FDA-Public Use
  Company Number: PHHY2009FR23807

PATIENT
  Age: 18 Year
  Sex: Male

DRUGS (2)
  1. RITALIN [Suspect]
     Indication: ATTENTION DEFICIT/HYPERACTIVITY DISORDER
     Dosage: UNK
  2. RITALIN [Suspect]
     Dosage: 5 DF, DAILY

REACTIONS (21)
  - ALANINE AMINOTRANSFERASE INCREASED [None]
  - ASPARTATE AMINOTRANSFERASE INCREASED [None]
  - BLOOD CREATINE PHOSPHOKINASE INCREASED [None]
  - BLOOD LACTIC ACID INCREASED [None]
  - BLOOD PHOSPHORUS INCREASED [None]
  - BLOOD PRESSURE DECREASED [None]
  - CELL DEATH [None]
  - DISORIENTATION [None]
  - GROIN PAIN [None]
  - HEART RATE INCREASED [None]
  - HYPERCALCAEMIA [None]
  - HYPERTHERMIA [None]
  - INGUINAL HERNIA [None]
  - INGUINAL HERNIA REPAIR [None]
  - MALAISE [None]
  - MEMORY IMPAIRMENT [None]
  - NEUTROPHIL COUNT INCREASED [None]
  - RHABDOMYOLYSIS [None]
  - THERAPY CESSATION [None]
  - VOMITING [None]
  - WHITE BLOOD CELL COUNT INCREASED [None]
